FAERS Safety Report 4969689-2 (Version None)
Quarter: 2006Q1

REPORT INFORMATION
  Report Type: 
  Country: None (occurrence: None)
  Receive Date: 20060202
  Receipt Date: 20041209
  Transmission Date: 20060701
  Serious: Yes (Hospitalization)
  Sender: FDA-Public Use
  Company Number: US-2004-033947

PATIENT
  Age: 22 Year
  Sex: Female
  Weight: 95.2 kg

DRUGS (1)
  1. MIRENA [Suspect]
     Indication: CONTRACEPTION
     Dosage: 20 UG/DAY, CONT, INTRA-UTERINE
     Route: 015
     Dates: start: 20031223, end: 20041027

REACTIONS (2)
  - ECTOPIC PREGNANCY [None]
  - PREGNANCY WITH CONTRACEPTIVE DEVICE [None]
